FAERS Safety Report 25082699 (Version 2)
Quarter: 2025Q1

REPORT INFORMATION
  Report Type: Spontaneous
  Country: US (occurrence: US)
  Receive Date: 20250317
  Receipt Date: 20250317
  Transmission Date: 20250409
  Serious: Yes (Hospitalization, Other)
  Sender: GLENMARK
  Company Number: US-GLENMARK PHARMACEUTICALS-2025GMK098643

PATIENT

DRUGS (1)
  1. CARVEDILOL [Suspect]
     Active Substance: CARVEDILOL
     Indication: Blood pressure abnormal
     Route: 048

REACTIONS (4)
  - Myocardial infarction [Unknown]
  - Drug ineffective [Unknown]
  - Suspected product quality issue [Unknown]
  - Recalled product administered [Unknown]
